FAERS Safety Report 6404063-3 (Version None)
Quarter: 2009Q4

REPORT INFORMATION
  Report Type: 
  Country: None (occurrence: None)
  Receive Date: 20091016
  Receipt Date: 20090908
  Transmission Date: 20100525
  Serious: No
  Sender: FDA-Public Use
  Company Number: US-ALEXION-A200900725

PATIENT
  Sex: Male

DRUGS (9)
  1. SOLIRIS [Suspect]
     Indication: PAROXYSMAL NOCTURNAL HAEMOGLOBINURIA
     Dosage: 600 MG, QW
     Route: 042
     Dates: start: 20070829, end: 20070901
  2. SOLIRIS [Suspect]
     Dosage: 900 MG, Q2W
     Route: 042
     Dates: start: 20070901
  3. PREDNISONE [Concomitant]
     Dosage: UNK
     Route: 048
     Dates: start: 20050201
  4. PREDNISONE [Concomitant]
     Dosage: 10,10,5 REPEATING SCHEDULE FOR THE WEEK
  5. PREDNISONE [Concomitant]
     Dosage: 10 MG QOD/ 5 MG QOD
     Route: 048
  6. IRON [Concomitant]
     Dosage: UNK
     Route: 048
  7. RESTORIL                           /00393701/ [Concomitant]
     Dosage: UNK
     Route: 048
  8. DRISDOL [Concomitant]
     Dosage: UNK
     Route: 048
  9. LASIX [Concomitant]
     Dosage: UNK
     Route: 048

REACTIONS (1)
  - FATIGUE [None]
